FAERS Safety Report 9021932 (Version 1)
Quarter: 2013Q1

REPORT INFORMATION
  Report Type: Report from Study
  Country: US (occurrence: US)
  Receive Date: 20130118
  Receipt Date: 20130118
  Transmission Date: 20140127
  Serious: Yes (Death, Life-Threatening, Hospitalization)
  Sender: FDA-Public Use
  Company Number: US-GENZYME-LEUK-1000236

PATIENT
  Age: 52 Year
  Sex: Female
  Weight: 76.5 kg

DRUGS (18)
  1. LEUKINE [Suspect]
     Indication: MALIGNANT MELANOMA
     Dosage: 250 MCG, QD
     Route: 058
     Dates: start: 20110624, end: 20110707
  2. LEUKINE [Suspect]
     Dosage: 250 MCG, QD
     Route: 058
     Dates: start: 20110715, end: 20110728
  3. LEUKINE [Suspect]
     Dosage: 250 MCG, QD
     Route: 058
     Dates: start: 20110805, end: 20110818
  4. LEUKINE [Suspect]
     Dosage: 250 MCG, QD
     Route: 058
     Dates: start: 20110826, end: 20110908
  5. LEUKINE [Suspect]
     Dosage: 250 MCG, QD
     Route: 058
     Dates: start: 20110916, end: 20110929
  6. LEUKINE [Suspect]
     Dosage: 250 MCG, QD
     Route: 058
     Dates: start: 20111007, end: 20111020
  7. LEUKINE [Suspect]
     Dosage: 250 MCG, QD
     Route: 058
     Dates: start: 20111028, end: 20111110
  8. LEUKINE [Suspect]
     Dosage: 250 MCG, QD
     Route: 058
     Dates: start: 20111118, end: 20111120
  9. IPILIMUMAB [Suspect]
     Indication: MALIGNANT MELANOMA
     Dosage: 758 MG, DAY 1 OF CYCLE 8
     Route: 042
     Dates: start: 20111118, end: 20111118
  10. IPILIMUMAB [Suspect]
     Dosage: 10 MG/KG, DAY 1 OF CYCLE 1
     Route: 042
     Dates: start: 20110624, end: 20110624
  11. IPILIMUMAB [Suspect]
     Dosage: 10 MG/KG, DAY 1 OF CYCLE 2
     Route: 042
     Dates: start: 20110715, end: 20110715
  12. IPILIMUMAB [Suspect]
     Dosage: 10 MG/KG, DAY 1 OF CYCLE 3
     Route: 042
     Dates: start: 20110805, end: 20110805
  13. IPILIMUMAB [Suspect]
     Dosage: 10 MG/KG, DAY 1 OF CYCLE 4
     Route: 042
     Dates: start: 20110826, end: 20110826
  14. IPILIMUMAB [Suspect]
     Dosage: 10 MG/KG, DAY 1 OF CYCLE 5
     Route: 042
     Dates: start: 20110916, end: 20110916
  15. EFEXOR [Concomitant]
     Indication: PRODUCT USED FOR UNKNOWN INDICATION
     Dosage: UNK
     Route: 065
  16. SYNTHROID [Concomitant]
     Indication: PRODUCT USED FOR UNKNOWN INDICATION
     Dosage: UNK
     Route: 065
  17. TYLENOL [Concomitant]
     Indication: PRODUCT USED FOR UNKNOWN INDICATION
     Dosage: UNK
     Route: 065
  18. FONDAPARINUX [Concomitant]
     Indication: PRODUCT USED FOR UNKNOWN INDICATION
     Dosage: UNK
     Route: 065

REACTIONS (10)
  - Cardiac arrest [Fatal]
  - Sepsis [Fatal]
  - Pyrexia [Fatal]
  - Oropharyngeal pain [Fatal]
  - Hypothyroidism [Fatal]
  - Arthralgia [Recovered/Resolved]
  - Bone pain [Recovered/Resolved]
  - Pain in extremity [Recovered/Resolved]
  - Adrenal insufficiency [Fatal]
  - Cough [Fatal]
